FAERS Safety Report 9897280 (Version 1)
Quarter: 2014Q1

REPORT INFORMATION
  Report Type: Report from Study
  Country: US (occurrence: US)
  Receive Date: 20140214
  Receipt Date: 20140214
  Transmission Date: 20141002
  Serious: Yes (Death)
  Sender: FDA-Public Use
  Company Number: US-ROCHE-1326806

PATIENT
  Sex: Female

DRUGS (3)
  1. AVASTIN [Suspect]
     Indication: GLIOBLASTOMA MULTIFORME
     Route: 042
     Dates: start: 20120124
  2. ATROPINE [Concomitant]
     Route: 040
  3. ADVIL [Concomitant]
     Route: 048
     Dates: start: 20120124

REACTIONS (1)
  - Death [Fatal]
